FAERS Safety Report 4747599-3 (Version None)
Quarter: 2005Q3

REPORT INFORMATION
  Report Type: 
  Country: None (occurrence: None)
  Receive Date: 20050818
  Receipt Date: 20041203
  Transmission Date: 20060218
  Serious: No
  Sender: FDA-Public Use
  Company Number: US-BRISTOL-MYERS SQUIBB COMPANY-12785366

PATIENT
  Age: 53 Year
  Sex: Female
  Weight: 122 kg

DRUGS (1)
  1. TEQUIN [Suspect]
     Indication: SINUSITIS
     Route: 048
     Dates: start: 20040701, end: 20040801

REACTIONS (2)
  - ARTHRALGIA [None]
  - BLOOD GLUCOSE INCREASED [None]
